FAERS Safety Report 11222154 (Version 17)
Quarter: 2017Q1

REPORT INFORMATION
  Report Type: Report from Study
  Country: CA (occurrence: CA)
  Receive Date: 20150626
  Receipt Date: 20170321
  Transmission Date: 20170428
  Serious: Yes (Hospitalization, Other)
  Sender: FDA-Public Use
  Company Number: PHHY2014CA158266

PATIENT
  Age: 64 Year
  Sex: Male
  Weight: 73.47 kg

DRUGS (9)
  1. BENADRYL [Concomitant]
     Active Substance: DIPHENHYDRAMINE HYDROCHLORIDE
     Indication: PRODUCT USED FOR UNKNOWN INDICATION
     Dosage: 50 MG, UNK
     Route: 048
     Dates: start: 201612
  2. COVERSYL [Concomitant]
     Active Substance: PERINDOPRIL
     Indication: BLOOD PRESSURE INCREASED
     Dosage: 4 MG
     Route: 065
  3. COVERSYL [Concomitant]
     Active Substance: PERINDOPRIL
     Dosage: 8 MG
     Route: 065
  4. TOPICORT [Concomitant]
     Active Substance: DESOXIMETASONE
     Indication: PRURITUS
     Dosage: UNK
     Route: 061
     Dates: start: 2016
  5. WARFARIN [Concomitant]
     Active Substance: WARFARIN
     Indication: PRODUCT USED FOR UNKNOWN INDICATION
     Route: 065
  6. METOPROLOL. [Suspect]
     Active Substance: METOPROLOL
     Indication: PRODUCT USED FOR UNKNOWN INDICATION
     Dosage: 25 MG, QAM (EVERY MORNING)
     Route: 065
  7. SANDOSTATIN LAR DEPOT [Suspect]
     Active Substance: OCTREOTIDE ACETATE
     Indication: NEUROENDOCRINE TUMOUR
     Dosage: 30 MG, QMO
     Route: 030
     Dates: start: 20141004
  8. SANDOSTATIN LAR DEPOT [Suspect]
     Active Substance: OCTREOTIDE ACETATE
     Indication: CARCINOID TUMOUR
     Dosage: 40 MG, QMO (ONCE A MONTH)
     Route: 030
     Dates: start: 20151014
  9. ZOPICLONE [Concomitant]
     Active Substance: ZOPICLONE
     Indication: PRODUCT USED FOR UNKNOWN INDICATION
     Route: 065

REACTIONS (41)
  - Amnesia [Unknown]
  - Cardiac valve disease [Unknown]
  - Hot flush [Unknown]
  - Night sweats [Unknown]
  - Decreased appetite [Recovering/Resolving]
  - Heart rate decreased [Unknown]
  - Weight decreased [Recovering/Resolving]
  - Insomnia [Not Recovered/Not Resolved]
  - Pruritus [Unknown]
  - Heart rate irregular [Unknown]
  - Headache [Recovered/Resolved]
  - Drug effect decreased [Unknown]
  - Balance disorder [Unknown]
  - Oedema [Recovering/Resolving]
  - Nasopharyngitis [Unknown]
  - Headache [Unknown]
  - Dyspnoea [Recovering/Resolving]
  - Diarrhoea [Recovering/Resolving]
  - Haematochezia [Unknown]
  - Underdose [Unknown]
  - Flushing [Unknown]
  - Increased appetite [Unknown]
  - Sluggishness [Unknown]
  - Mass [Unknown]
  - Blood pressure increased [Not Recovered/Not Resolved]
  - Blood pressure systolic increased [Not Recovered/Not Resolved]
  - Body temperature decreased [Unknown]
  - Chest pain [Unknown]
  - Speech disorder [Unknown]
  - Oedema peripheral [Recovering/Resolving]
  - Needle issue [Unknown]
  - Pulmonary oedema [Unknown]
  - Disorientation [Unknown]
  - Blood pressure diastolic decreased [Unknown]
  - Wrong technique in product usage process [Unknown]
  - Rhinorrhoea [Unknown]
  - Rash [Unknown]
  - Intra-abdominal fluid collection [Unknown]
  - Joint swelling [Recovering/Resolving]
  - Weight increased [Unknown]
  - Flushing [Recovering/Resolving]

NARRATIVE: CASE EVENT DATE: 201411
